FAERS Safety Report 8342112-6 (Version None)
Quarter: 2012Q2

REPORT INFORMATION
  Report Type: 
  Country: None (occurrence: None)
  Receive Date: 20120507
  Receipt Date: 20120501
  Transmission Date: 20120825
  Serious: No
  Sender: FDA-Public Use
  Company Number: US-PFIZER INC-2012108769

PATIENT

DRUGS (2)
  1. LIPITOR [Suspect]
     Dosage: 10 MG, /DAY
  2. LIPITOR [Suspect]
     Dosage: 20 MG, UNK

REACTIONS (1)
  - DYSPEPSIA [None]
